FAERS Safety Report 7373354-4 (Version None)
Quarter: 2011Q1

REPORT INFORMATION
  Report Type: 
  Country: None (occurrence: None)
  Receive Date: 20110324
  Receipt Date: 20110314
  Transmission Date: 20110831
  Serious: Yes (Other)
  Sender: FDA-Public Use
  Company Number: JP-AMGEN-JPNCT2011005553

PATIENT
  Age: 51 Year
  Sex: Female
  Weight: 39 kg

DRUGS (17)
  1. LEUCOVORIN [Suspect]
     Indication: COLORECTAL CANCER
     Route: 041
     Dates: start: 20101109, end: 20110120
  2. CALCICOL [Concomitant]
     Dosage: UNK
     Route: 042
  3. CORTICOSTEROIDS [Concomitant]
     Indication: PROPHYLAXIS
     Dosage: UNK
     Route: 065
  4. HIRUDOID [Concomitant]
     Dosage: UNK
     Route: 062
  5. SENNOSIDE [Concomitant]
     Dosage: UNK
     Route: 048
  6. MAGMITT [Concomitant]
     Route: 048
  7. FLUOROURACIL [Suspect]
     Route: 041
     Dates: start: 20101109, end: 20110120
  8. FERROUS CITRATE [Concomitant]
     Dosage: UNK
     Route: 048
  9. MINOCYCLINE HYDROCHLORIDE [Concomitant]
     Dosage: UNK
     Route: 048
  10. OXALIPLATIN [Suspect]
     Indication: COLORECTAL CANCER
     Route: 041
     Dates: start: 20101109, end: 20110120
  11. DEXART [Concomitant]
     Dosage: UNK
     Route: 042
  12. MAGNESIUM SULFATE [Concomitant]
     Dosage: UNK
     Route: 042
  13. KENALOG [Concomitant]
     Dosage: UNK
     Route: 049
  14. PANITUMUMAB [Suspect]
     Indication: COLORECTAL CANCER
     Dosage: 6 MG/KG, Q2WK
     Route: 041
     Dates: start: 20101109
  15. GRANISETRON HCL [Concomitant]
     Dosage: UNK
     Route: 042
  16. FLUOROURACIL [Suspect]
     Indication: COLORECTAL CANCER
     Route: 040
     Dates: start: 20101109, end: 20110120
  17. ANTIHISTAMINES [Concomitant]
     Indication: PROPHYLAXIS
     Dosage: UNK
     Route: 065

REACTIONS (3)
  - STOMATITIS [None]
  - DERMATITIS ACNEIFORM [None]
  - WHITE BLOOD CELL COUNT DECREASED [None]
